FAERS Safety Report 18455594 (Version 1)
Quarter: 2020Q4

REPORT INFORMATION
  Report Type: Spontaneous
  Country: US (occurrence: US)
  Receive Date: 20201103
  Receipt Date: 20201103
  Transmission Date: 20210114
  Serious: Yes (Life-Threatening, Hospitalization, Other)
  Sender: FDA-Public Use
  Company Number: US-LUPIN PHARMACEUTICALS INC.-2020-08170

PATIENT
  Age: 65 Year
  Sex: Male

DRUGS (1)
  1. TESTOSTERONE. [Suspect]
     Active Substance: TESTOSTERONE
     Indication: FATIGUE
     Dosage: UNK (WEEKLY TESTOSTERONE REPLACEMENT THERAPY)
     Route: 065

REACTIONS (5)
  - Pulmonary embolism [Unknown]
  - Diastolic dysfunction [Unknown]
  - Ventricular hypokinesia [Unknown]
  - Embolism venous [Unknown]
  - Right ventricular hypertrophy [Unknown]
